FAERS Safety Report 8988797 (Version 3)
Quarter: 2013Q1

REPORT INFORMATION
  Report Type: Spontaneous
  Country: JP (occurrence: JP)
  Receive Date: 20121228
  Receipt Date: 20130311
  Transmission Date: 20140127
  Serious: Yes (Hospitalization)
  Sender: FDA-Public Use
  Company Number: JP-JNJFOC-20121114871

PATIENT
  Age: 62 Year
  Sex: Female

DRUGS (33)
  1. ITRIZOLE [Suspect]
     Indication: FUNGAL INFECTION
     Dosage: 2500 MG- CUMULATIVE DOSE TO FIRST REACTION
     Route: 048
     Dates: start: 20071029, end: 20071029
  2. ITRIZOLE [Suspect]
     Indication: FUNGAL INFECTION
     Dosage: CUMULATIVE DOSE TO FIRST REACTION- 2500 MG
     Route: 048
     Dates: start: 20071030, end: 20071105
  3. ITRIZOLE [Suspect]
     Indication: FUNGAL INFECTION
     Dosage: CUMULATIVE DOSE TO FIRST REACTION- 2500 MG
     Route: 048
     Dates: start: 20071114, end: 20071130
  4. ITRIZOLE [Suspect]
     Indication: FUNGAL INFECTION
     Dosage: ON FIRST DAY
     Route: 048
  5. ITRIZOLE [Suspect]
     Indication: FUNGAL INFECTION
     Dosage: AFTER BREAKFAST; CUMULATIVE DOSE- 2500 MG
     Route: 048
  6. ITRIZOLE [Suspect]
     Indication: ORAL CANDIDIASIS
     Dosage: 2500 MG- CUMULATIVE DOSE TO FIRST REACTION
     Route: 048
     Dates: start: 20071029, end: 20071029
  7. ITRIZOLE [Suspect]
     Indication: ORAL CANDIDIASIS
     Dosage: CUMULATIVE DOSE TO FIRST REACTION- 2500 MG
     Route: 048
     Dates: start: 20071030, end: 20071105
  8. ITRIZOLE [Suspect]
     Indication: ORAL CANDIDIASIS
     Dosage: CUMULATIVE DOSE TO FIRST REACTION- 2500 MG
     Route: 048
     Dates: start: 20071114, end: 20071130
  9. ITRIZOLE [Suspect]
     Indication: ORAL CANDIDIASIS
     Dosage: ON FIRST DAY
     Route: 048
  10. ITRIZOLE [Suspect]
     Indication: ORAL CANDIDIASIS
     Dosage: AFTER BREAKFAST; CUMULATIVE DOSE- 2500 MG
     Route: 048
  11. DIFLUCAN [Suspect]
     Indication: PRODUCT USED FOR UNKNOWN INDICATION
     Dosage: AFTER BREAKFAST, CUMULATIVE DOSE OF 900MG
     Route: 065
  12. DIFLUCAN [Suspect]
     Indication: FUNGAL INFECTION
     Dosage: CUMULATIVE DOSE OF 800 MG; DURATION OF DRUG ADMINISTRATION- 8 DAYS
     Route: 048
     Dates: start: 20071106, end: 20071113
  13. PROGRAF [Interacting]
     Indication: SYSTEMIC LUPUS ERYTHEMATOSUS
     Dosage: TOTAL DOSE- 69.194 MG; DURATION OF DRUG ADMINISTRATION- 30 DAYS
     Route: 048
     Dates: start: 20071105, end: 20071205
  14. PROGRAF [Interacting]
     Indication: SYSTEMIC LUPUS ERYTHEMATOSUS
     Dosage: CUMULATIVE DOSE TO FIRST REACTION- 69.194 MG; DURATION OF DRUG ADMIN- 352 DAYS
     Route: 048
     Dates: start: 20071206, end: 20081121
  15. PROGRAF [Interacting]
     Indication: SYSTEMIC LUPUS ERYTHEMATOSUS
     Dosage: AFTER DINNER; TOTAL- 42 DAYS; DURATION OF DRUG ADMIN- 11 DAYS
     Route: 048
     Dates: start: 20071019, end: 20071028
  16. PROGRAF [Interacting]
     Indication: SYSTEMIC LUPUS ERYTHEMATOSUS
     Dosage: 69.194 MG; DURATION OF DRUG ADMINISTRATION- 6 DAYS
     Route: 048
     Dates: start: 20071029, end: 20071104
  17. VFEND [Interacting]
     Indication: FUNGAL INFECTION
     Dosage: DURATION OF DRUG ADMINISTRATION- 102 DAYS
     Route: 048
     Dates: start: 20071202, end: 20080312
  18. VFEND [Interacting]
     Indication: FUNGAL INFECTION
     Route: 048
     Dates: start: 20071201, end: 20071201
  19. VFEND [Interacting]
     Indication: FUNGAL INFECTION
     Dosage: 1X/DAY, 2 HOURS AFTER BREAKFAST AND DINNER
     Route: 048
  20. VFEND [Interacting]
     Indication: FUNGAL INFECTION
     Dosage: FOR FIRST 24 HOURS
     Route: 048
  21. TAKEPRON [Interacting]
     Indication: PROPHYLAXIS AGAINST GASTROINTESTINAL ULCER
     Dosage: CUMULATIVE DOSE TO FIRST REACTION- 1260 MG;DRUG ADMIN DURATION- 442 DAYS;START PERIOD- 84 DAYS
     Route: 048
     Dates: start: 20070907, end: 20081121
  22. VFEND [Interacting]
     Indication: FUNGAL INFECTION
     Route: 048
     Dates: start: 20071202, end: 20080312
  23. VFEND [Interacting]
     Indication: FUNGAL INFECTION
     Route: 048
     Dates: start: 20071201, end: 20071201
  24. ITRACONAZOLE [Concomitant]
     Dosage: AFTER BREAKFAST
     Route: 048
  25. BLOPRESS [Concomitant]
     Indication: HYPERTENSION
     Dosage: DURATION OF DRUG ADMINISTRATION- 442 DAYS
     Route: 048
     Dates: start: 20070907, end: 20081121
  26. PREDNISOLONE [Concomitant]
     Indication: SYSTEMIC LUPUS ERYTHEMATOSUS
     Route: 048
  27. PREDNISOLONE [Concomitant]
     Indication: SYSTEMIC LUPUS ERYTHEMATOSUS
     Route: 048
     Dates: start: 20071116
  28. PREDNISOLONE [Concomitant]
     Indication: SYSTEMIC LUPUS ERYTHEMATOSUS
     Route: 048
     Dates: end: 20081121
  29. PREDNISOLONE [Concomitant]
     Indication: SYSTEMIC LUPUS ERYTHEMATOSUS
     Dosage: DURATION OF DRUG ADMINSTRATION- 42 DAYS
     Route: 048
     Dates: start: 20070907, end: 20071018
  30. PREDNISOLONE [Concomitant]
     Indication: SYSTEMIC LUPUS ERYTHEMATOSUS
     Dosage: DURATION OF DRUG ADMINISTRATION- 28 DAYS
     Route: 048
     Dates: start: 20071019, end: 20071115
  31. GLUFAST [Concomitant]
     Indication: DIABETES MELLITUS
     Dosage: CUMULATIVE DOSE TO FIRST REACTION- 1680 MG??DURATION OF DRUG ADMINISTRATION- 442 DAYS
     Route: 048
     Dates: start: 20070907, end: 20081121
  32. SELBEX [Concomitant]
     Indication: PROPHYLAXIS AGAINST GASTROINTESTINAL ULCER
     Dosage: DURATION OF DRUG ADMINISTRATION- 442 DAYS
     Route: 048
     Dates: start: 20070907, end: 20081121
  33. MAGLAX [Concomitant]
     Indication: CONSTIPATION
     Dosage: DURATION OF DRUG ADMINISTRATION- 442 DAYS
     Route: 048
     Dates: start: 20070907, end: 20081121

REACTIONS (4)
  - Systemic mycosis [Recovered/Resolved]
  - Drug interaction [Recovered/Resolved]
  - Drug level increased [Unknown]
  - Immunosuppressant drug level increased [Unknown]
